FAERS Safety Report 18010547 (Version 1)
Quarter: 2020Q3

REPORT INFORMATION
  Report Type: Not Available
  Country: US (occurrence: US)
  Receive Date: 20200710
  Receipt Date: 20200710
  Transmission Date: 20201103
  Serious: No
  Sender: FDA-Public Use
  Company Number: US-NEUROCRINE BIOSCIENCES INC.-2020NBI02212

PATIENT
  Age: 37 Year
  Sex: Male

DRUGS (3)
  1. INGREZZA [Suspect]
     Active Substance: VALBENAZINE
     Indication: TARDIVE DYSKINESIA
     Route: 048
     Dates: start: 20190515, end: 20190523
  2. OLANZAPINE. [Suspect]
     Active Substance: OLANZAPINE
  3. INGREZZA [Suspect]
     Active Substance: VALBENAZINE
     Route: 048
     Dates: start: 20190524

REACTIONS (4)
  - Increased appetite [Unknown]
  - Dyskinesia [Unknown]
  - Restlessness [Unknown]
  - Gait disturbance [Unknown]
